FAERS Safety Report 5239457-5 (Version None)
Quarter: 2007Q1

REPORT INFORMATION
  Report Type: 
  Country: None (occurrence: None)
  Receive Date: 20070216
  Receipt Date: 20070209
  Transmission Date: 20070707
  Serious: Yes (Hospitalization)
  Sender: FDA-Public Use
  Company Number: NL-AVENTIS-200710994GDDC

PATIENT
  Age: 65 Year
  Sex: Female
  Weight: 62 kg

DRUGS (6)
  1. ARAVA [Suspect]
     Route: 048
     Dates: start: 20061016, end: 20061018
  2. ARAVA [Suspect]
     Route: 048
     Dates: start: 20061019, end: 20070110
  3. OMEPRAZOLE [Suspect]
     Route: 048
     Dates: start: 20060505, end: 20070110
  4. PREDNISOLONE [Suspect]
     Route: 048
     Dates: start: 20060505, end: 20070110
  5. ACTONEL [Concomitant]
     Route: 048
     Dates: start: 20060516, end: 20070110
  6. CALCIUM CARBONATE W/COLECALCIFEROL [Concomitant]
     Dosage: DOSE: 1.25G/400IE
     Route: 048
     Dates: start: 20060516

REACTIONS (2)
  - ABDOMINAL PAIN UPPER [None]
  - HEPATIC FUNCTION ABNORMAL [None]
